FAERS Safety Report 24875430 (Version 2)
Quarter: 2025Q1

REPORT INFORMATION
  Report Type: Spontaneous
  Country: JP (occurrence: JP)
  Receive Date: 20250122
  Receipt Date: 20250221
  Transmission Date: 20250409
  Serious: Yes (Other)
  Sender: PFIZER
  Company Number: JP-ONO-2025JP000841

PATIENT
  Age: 85 Year
  Sex: Male

DRUGS (2)
  1. BRAFTOVI [Suspect]
     Active Substance: ENCORAFENIB
     Indication: Thyroid cancer
     Route: 048
     Dates: start: 20250116
  2. MEKTOVI [Suspect]
     Active Substance: BINIMETINIB
     Indication: Thyroid cancer
     Route: 048
     Dates: start: 20250116

REACTIONS (2)
  - Renal impairment [Not Recovered/Not Resolved]
  - Subretinal fluid [Unknown]

NARRATIVE: CASE EVENT DATE: 20250120
